FAERS Safety Report 4888635-3 (Version None)
Quarter: 2005Q4

REPORT INFORMATION
  Report Type: 
  Country: None (occurrence: None)
  Receive Date: 20051215
  Receipt Date: 20041122
  Transmission Date: 20060501
  Serious: Yes (Other)
  Sender: FDA-Public Use
  Company Number: 2004098187

PATIENT
  Sex: Male

DRUGS (1)
  1. VALDECOXIB [Suspect]
     Indication: ILL-DEFINED DISORDER
     Dosage: 20 MG (20 MG,QD)

REACTIONS (1)
  - CHEST PAIN [None]
